FAERS Safety Report 9221914 (Version 1)
Quarter: 2013Q2

REPORT INFORMATION
  Report Type: Spontaneous
  Country: US (occurrence: None)
  Receive Date: 20130408
  Receipt Date: 20130408
  Transmission Date: 20140414
  Serious: Yes (Hospitalization)
  Sender: FDA-Public Use
  Company Number: UTC-031189

PATIENT
  Age: 16 Year
  Sex: Male
  Weight: 56.7 kg

DRUGS (4)
  1. REMODULIN [Suspect]
     Indication: PULMONARY ARTERIAL HYPERTENSION
     Dosage: (0.154 UG/KG, 1 IN MIN), INTRAVENOUS DRIP?
     Route: 041
     Dates: start: 20110202
  2. ADCIRCA (TADALAFIL) (UNKNOWN) [Concomitant]
  3. COUMADIN (WARFARIN SODIUM) (UNKNOWN) [Concomitant]
  4. LETAIRIS (AMBRISENTAN) (UNKNOWN) [Concomitant]

REACTIONS (6)
  - Nausea [None]
  - Pallor [None]
  - Vomiting [None]
  - Cardiac output increased [None]
  - Incorrect drug administration rate [None]
  - Weight decreased [None]
